FAERS Safety Report 6883587-9 (Version None)
Quarter: 2010Q3

REPORT INFORMATION
  Report Type: 
  Country: None (occurrence: None)
  Receive Date: 20100729
  Receipt Date: 20090114
  Transmission Date: 20110219
  Serious: No
  Sender: FDA-Public Use
  Company Number: US-PFIZER INC-2008161260

PATIENT
  Sex: Male

DRUGS (1)
  1. CHANTIX [Suspect]
     Dosage: UNK
     Dates: end: 20081201

REACTIONS (4)
  - ABNORMAL DREAMS [None]
  - FATIGUE [None]
  - HYPERSOMNIA [None]
  - THYROID DISORDER [None]
